FAERS Safety Report 12544383 (Version 1)
Quarter: 2016Q3

REPORT INFORMATION
  Report Type: Spontaneous
  Country: US (occurrence: None)
  Receive Date: 20160708
  Receipt Date: 20160708
  Transmission Date: 20161109
  Serious: No
  Sender: FDA-Public Use
  Company Number: None

PATIENT
  Age: 52 Year
  Sex: Female

DRUGS (1)
  1. HUMIRA [Suspect]
     Active Substance: ADALIMUMAB
     Indication: RHEUMATOID ARTHRITIS
     Dosage: 40MG EVERY OTHER WEEK UNDER THE SKIN
     Route: 058
     Dates: start: 20160402

REACTIONS (5)
  - Dry skin [None]
  - Pruritus [None]
  - Rash pustular [None]
  - Skin exfoliation [None]
  - Tongue eruption [None]

NARRATIVE: CASE EVENT DATE: 20160422
